FAERS Safety Report 9852645 (Version 1)
Quarter: 2014Q1

REPORT INFORMATION
  Report Type: Spontaneous
  Country: US (occurrence: None)
  Receive Date: 20140128
  Receipt Date: 20140128
  Transmission Date: 20141002
  Serious: Yes (Disabling, Other)
  Sender: FDA-Public Use
  Company Number: None

PATIENT
  Age: 25 Year
  Sex: Male
  Weight: 86.18 kg

DRUGS (3)
  1. SULFAMETHOXAZOLE/TMP DS [Suspect]
     Indication: STAPHYLOCOCCAL INFECTION
     Dosage: 20, TWICE DAILY, MOUTH
     Route: 048
     Dates: start: 20130518, end: 20130528
  2. THYROID [Concomitant]
  3. ADDERALL [Concomitant]

REACTIONS (2)
  - Blindness unilateral [None]
  - Nerve injury [None]
